FAERS Safety Report 7666920-X (Version None)
Quarter: 2011Q3

REPORT INFORMATION
  Report Type: 
  Country: None (occurrence: None)
  Receive Date: 20110806
  Receipt Date: 20110422
  Transmission Date: 20111222
  Serious: No
  Sender: FDA-Public Use
  Company Number: US-ABBOTT-11P-163-0721456-00

PATIENT
  Sex: Male
  Weight: 99.88 kg

DRUGS (4)
  1. LEXAPRO [Concomitant]
     Indication: ANXIETY
  2. NIASPAN [Suspect]
     Indication: BLOOD TRIGLYCERIDES INCREASED
     Dates: start: 20110401, end: 20110421
  3. NIASPAN [Suspect]
     Dates: start: 20110422
  4. UNKNOWN THYROID MEDICATION [Concomitant]
     Indication: HYPOTHYROIDISM

REACTIONS (5)
  - FLATULENCE [None]
  - IRRITABILITY [None]
  - INSOMNIA [None]
  - ANXIETY [None]
  - ABDOMINAL PAIN UPPER [None]
